FAERS Safety Report 12098963 (Version 1)
Quarter: 2016Q1

REPORT INFORMATION
  Report Type: Spontaneous
  Country: US (occurrence: US)
  Receive Date: 20160222
  Receipt Date: 20160222
  Transmission Date: 20160526
  Serious: Yes (Other)
  Sender: FDA-Public Use
  Company Number: US-SA-2016SA032254

PATIENT
  Age: 85 Year
  Sex: Male

DRUGS (1)
  1. BCG FOR IMMUNOTHERAPY [Suspect]
     Active Substance: BACILLUS CALMETTE-GUERIN ANTIGEN, UNSPECIFIED SUBSTRAIN
     Indication: BLADDER CANCER
     Route: 065
     Dates: start: 201404, end: 201404

REACTIONS (6)
  - Disseminated Bacillus Calmette-Guerin infection [Unknown]
  - Faeces discoloured [Unknown]
  - Syncope [Unknown]
  - Infective aneurysm [Unknown]
  - Haemoptysis [Unknown]
  - Hypotension [Unknown]
